FAERS Safety Report 5916296-0 (Version None)
Quarter: 2008Q4

REPORT INFORMATION
  Report Type: 
  Country: None (occurrence: None)
  Receive Date: 20081013
  Receipt Date: 20081007
  Transmission Date: 20090506
  Serious: Yes (Life-Threatening, Hospitalization)
  Sender: FDA-Public Use
  Company Number: PHHY2008FR23914

PATIENT
  Sex: Female

DRUGS (3)
  1. ESIDRIX [Suspect]
     Indication: HYPERTENSION
     Dosage: 25 MG, QD
     Dates: start: 20080724, end: 20080811
  2. OGASTRO [Suspect]
     Indication: GASTROOESOPHAGEAL REFLUX DISEASE
     Dosage: 15 MG, QD
     Route: 048
     Dates: start: 20080723, end: 20080811
  3. OGASTRO [Suspect]
     Indication: ABDOMINAL PAIN UPPER

REACTIONS (1)
  - HYPONATRAEMIA [None]
